FAERS Safety Report 6178573-0 (Version None)
Quarter: 2009Q2

REPORT INFORMATION
  Report Type: 
  Country: None (occurrence: None)
  Receive Date: 20090430
  Receipt Date: 20090421
  Transmission Date: 20091009
  Serious: No
  Sender: FDA-Public Use
  Company Number: 2009-195610-NL

PATIENT
  Sex: Male

DRUGS (1)
  1. MIRTAZAPINE [Suspect]
     Dosage: 30 MG
     Dates: start: 20090401

REACTIONS (3)
  - PALPITATIONS [None]
  - SINUS TACHYCARDIA [None]
  - SOMNOLENCE [None]
